FAERS Safety Report 21189975 (Version 2)
Quarter: 2022Q3

REPORT INFORMATION
  Report Type: Report from Study
  Country: CN (occurrence: CN)
  Receive Date: 20220809
  Receipt Date: 20220906
  Transmission Date: 20221026
  Serious: Yes (Hospitalization)
  Sender: FDA-Public Use
  Company Number: CN-GLAXOSMITHKLINE-CN2022APC114503

PATIENT

DRUGS (19)
  1. BELIMUMAB [Suspect]
     Active Substance: BELIMUMAB
     Indication: Systemic lupus erythematosus
     Dosage: 480 MG
     Route: 042
     Dates: start: 20220107
  2. BELIMUMAB [Suspect]
     Active Substance: BELIMUMAB
     Dosage: 480 MG
     Route: 042
     Dates: start: 20220204
  3. BELIMUMAB [Suspect]
     Active Substance: BELIMUMAB
     Dosage: 480 MG
     Route: 042
     Dates: start: 20220401
  4. BELIMUMAB [Suspect]
     Active Substance: BELIMUMAB
     Dosage: 480 MG
     Route: 042
     Dates: start: 20220707
  5. CICLOSPORIN SOFT CAPSULES [Concomitant]
     Indication: Systemic lupus erythematosus
     Dosage: 75 MG, BID
     Route: 048
     Dates: start: 20211220, end: 20220317
  6. CICLOSPORIN SOFT CAPSULES [Concomitant]
     Dosage: 25 MG, BID
     Route: 048
     Dates: start: 20220318, end: 20220530
  7. HYDROXYCHLOROQUINE [Concomitant]
     Active Substance: HYDROXYCHLOROQUINE
     Indication: Systemic lupus erythematosus
     Dosage: 75 MG, BID
     Route: 048
     Dates: start: 20211222
  8. RIVAROXABAN [Concomitant]
     Active Substance: RIVAROXABAN
     Indication: Venous thrombosis
     Dosage: 15 MG, QD
     Route: 048
     Dates: start: 20211222, end: 20220401
  9. LANSOPRAZOLE TABLETS [Concomitant]
     Indication: Chronic gastritis
     Dosage: 15 MG, QD
     Route: 048
     Dates: start: 20211222, end: 20220401
  10. REBAMIPIDE [Concomitant]
     Active Substance: REBAMIPIDE
     Indication: Chronic gastritis
     Dosage: 0.1 G, TID
     Route: 048
     Dates: start: 20211129, end: 20220530
  11. ALMAGATE SUSPENSION [Concomitant]
     Indication: Chronic gastritis
     Dosage: 1 PACK, TID
     Route: 048
     Dates: start: 20211129, end: 20220304
  12. CALCIUM CARBONATE AND VITAMIN D3 TABLETS [Concomitant]
     Indication: Osteoporosis
     Dosage: 1 DF, QD
     Route: 048
     Dates: start: 20211130
  13. ALFACALCIDOL TABLETS [Concomitant]
     Indication: Osteoporosis
     Dosage: 0.5 UG, QD
     Route: 048
     Dates: start: 20211202
  14. CYCLOPHOSPHAMIDE [Concomitant]
     Active Substance: CYCLOPHOSPHAMIDE
     Indication: Systemic lupus erythematosus
     Dosage: 0.6 G, Z (OTHER)
     Route: 050
     Dates: start: 20220108, end: 20220530
  15. PREDNISONE [Concomitant]
     Active Substance: PREDNISONE
     Indication: Systemic lupus erythematosus
     Dosage: 30 MG, QD
     Route: 048
     Dates: start: 20220211, end: 20220304
  16. PREDNISONE [Concomitant]
     Active Substance: PREDNISONE
     Dosage: 25 MG, QD
     Route: 048
     Dates: start: 20220305, end: 20220314
  17. PREDNISONE [Concomitant]
     Active Substance: PREDNISONE
     Dosage: 20 MG, QD
     Route: 048
     Dates: start: 20220315, end: 20220321
  18. PREDNISONE [Concomitant]
     Active Substance: PREDNISONE
     Dosage: 15 MG, QD
     Route: 048
     Dates: start: 20220322, end: 20220328
  19. PREDNISONE [Concomitant]
     Active Substance: PREDNISONE
     Dosage: 10 MG, QD
     Route: 048
     Dates: start: 20220329

REACTIONS (1)
  - Epstein-Barr virus infection [Not Recovered/Not Resolved]

NARRATIVE: CASE EVENT DATE: 20220606
